FAERS Safety Report 17895749 (Version 1)
Quarter: 2020Q2

REPORT INFORMATION
  Report Type: Spontaneous
  Country: US (occurrence: US)
  Receive Date: 20200615
  Receipt Date: 20200615
  Transmission Date: 20200714
  Serious: Yes (Other)
  Sender: FDA-Public Use
  Company Number: US-SUNOVION-2020SUN001764

PATIENT
  Age: 43 Year

DRUGS (1)
  1. LATUDA [Suspect]
     Active Substance: LURASIDONE HYDROCHLORIDE
     Dosage: 120 MG
     Route: 048
     Dates: start: 2020

REACTIONS (5)
  - Depression [Unknown]
  - Tremor [Unknown]
  - Drug ineffective [Unknown]
  - Hallucination [Unknown]
  - Crying [Unknown]
